FAERS Safety Report 24010432 (Version 1)
Quarter: 2024Q2

REPORT INFORMATION
  Report Type: Spontaneous
  Country: US (occurrence: US)
  Receive Date: 20240625
  Receipt Date: 20240625
  Transmission Date: 20240715
  Serious: No
  Sender: FDA-Public Use
  Company Number: US-PFIZER INC-202400197633

PATIENT
  Age: 48 Year
  Sex: Female
  Weight: 105.23 kg

DRUGS (6)
  1. PAXLOVID [Suspect]
     Active Substance: NIRMATRELVIR\RITONAVIR
     Indication: COVID-19 treatment
     Dosage: [NIRMATRELVIR 300 MG]/[RITONAVIR 100 MG]; 2X/DAY
     Route: 048
     Dates: start: 20240618
  2. ASPIRIN [Concomitant]
     Active Substance: ASPIRIN
     Dosage: 81 MG, 1X/DAY
     Route: 048
     Dates: start: 20240615
  3. VITAMINS [Concomitant]
     Active Substance: VITAMINS
  4. ESTROGEL [Concomitant]
     Active Substance: ESTRADIOL
     Dosage: UNK, 1X/DAY
     Route: 061
  5. ESTROGENS [Concomitant]
     Active Substance: ESTROGENS
  6. CLARITIN-D NOS [Concomitant]
     Active Substance: LORATADINE\PSEUDOEPHEDRINE SULFATE
     Indication: COVID-19
     Dosage: UNK, 2X/DAY
     Route: 048
     Dates: start: 20240616

REACTIONS (7)
  - Glossodynia [Unknown]
  - Oral pain [Unknown]
  - Paraesthesia oral [Unknown]
  - Tongue discomfort [Unknown]
  - Skin tightness [Unknown]
  - Sunburn [Unknown]
  - Intentional product use issue [Unknown]

NARRATIVE: CASE EVENT DATE: 20240619
